FAERS Safety Report 4775446-2 (Version None)
Quarter: 2005Q3

REPORT INFORMATION
  Report Type: 
  Country: None (occurrence: None)
  Receive Date: 20050921
  Receipt Date: 20050921
  Transmission Date: 20060218
  Serious: Yes (Hospitalization)
  Sender: FDA-Public Use
  Company Number: None

PATIENT
  Sex: Male

DRUGS (16)
  1. VALPROIC ACID [Suspect]
     Indication: BIPOLAR DISORDER
     Dosage: 1000 MG BID PO
     Route: 048
  2. VALPROIC ACID [Suspect]
     Indication: SCHIZOAFFECTIVE DISORDER
     Dosage: 1000 MG BID PO
     Route: 048
  3. COMBIVENT [Concomitant]
  4. ASCORBIC ACID [Concomitant]
  5. ASPIRIN [Concomitant]
  6. CLOPIDOGREL [Concomitant]
  7. DONEPEZIL HCL [Concomitant]
  8. FERROUS SULFATE [Concomitant]
  9. GEMFIBROZIL [Concomitant]
  10. IBUPROFEN [Concomitant]
  11. ISONIAZID [Concomitant]
  12. LISINOPRIL [Concomitant]
  13. LORAZEPAM [Concomitant]
  14. OMEPRAZOLE [Concomitant]
  15. PYRIDOXINE HCL [Concomitant]
  16. QUETIAPINE FUMARATE [Concomitant]

REACTIONS (4)
  - AMMONIA INCREASED [None]
  - CONVULSION [None]
  - DRUG LEVEL INCREASED [None]
  - STARING [None]
